FAERS Safety Report 4821881-3 (Version None)
Quarter: 2005Q4

REPORT INFORMATION
  Report Type: 
  Country: None (occurrence: None)
  Receive Date: 20051103
  Receipt Date: 20051024
  Transmission Date: 20060501
  Serious: Yes (Other)
  Sender: FDA-Public Use
  Company Number: 2005145973

PATIENT
  Age: 22 Year
  Sex: Female

DRUGS (5)
  1. MEDROXYPROGESTERONE ACETATE [Suspect]
     Indication: AMENORRHOEA
     Dosage: 10 MG (10 MG, DAILY, EVERYDAY), ORAL
     Route: 048
     Dates: start: 20051012, end: 20051022
  2. INSULIN [Concomitant]
  3. METFORMIN HCL [Concomitant]
  4. CAPTOPRIL [Concomitant]
  5. HYDROCHLOROTHIAZIDE [Concomitant]

REACTIONS (1)
  - NODULE [None]
